FAERS Safety Report 5165776-7 (Version None)
Quarter: 2006Q4

REPORT INFORMATION
  Report Type: 
  Country: None (occurrence: None)
  Receive Date: 20061128
  Receipt Date: 20060922
  Transmission Date: 20070319
  Serious: Yes (Life-Threatening, Other)
  Sender: FDA-Public Use
  Company Number: 2006SP002576

PATIENT
  Age: 66 Year
  Sex: Male

DRUGS (9)
  1. K-DUR 10 [Suspect]
     Indication: DRUG USE FOR UNKNOWN INDICATION
  2. CARDURA [Concomitant]
  3. GLIPIZIDE [Concomitant]
  4. NORVASC [Concomitant]
  5. ATENOLOL [Concomitant]
  6. PREDNISONE TAB [Concomitant]
  7. COZAAR [Concomitant]
  8. PRAVACHOL [Concomitant]
  9. DEMADEX [Concomitant]

REACTIONS (1)
  - HEART TRANSPLANT [None]
